FAERS Safety Report 19744396 (Version 1)
Quarter: 2021Q3

REPORT INFORMATION
  Report Type: Spontaneous
  Country: US (occurrence: US)
  Receive Date: 20210823
  Receipt Date: 20210823
  Transmission Date: 20211014
  Serious: Yes (Other)
  Sender: FDA-Public Use
  Company Number: None

PATIENT
  Age: 21 Year
  Sex: Female
  Weight: 58.5 kg

DRUGS (1)
  1. ANNOVERA [Suspect]
     Active Substance: ETHINYL ESTRADIOL\SEGESTERONE ACETATE
     Indication: CONTRACEPTION
     Dosage: ?          QUANTITY:1 VAGINAL SYSTEM;OTHER FREQUENCY:INSERT FOR 3 WEEKS;?
     Route: 067
     Dates: start: 20210208, end: 20210222

REACTIONS (2)
  - Hypoaesthesia [None]
  - Paraesthesia [None]

NARRATIVE: CASE EVENT DATE: 20210215
